FAERS Safety Report 6827537-X (Version None)
Quarter: 2010Q3

REPORT INFORMATION
  Report Type: 
  Country: None (occurrence: None)
  Receive Date: 20100709
  Receipt Date: 20070118
  Transmission Date: 20110219
  Serious: No
  Sender: FDA-Public Use
  Company Number: US-PFIZER INC-2007005454

PATIENT
  Sex: Female
  Weight: 78.93 kg

DRUGS (2)
  1. CHANTIX [Suspect]
     Indication: SMOKING CESSATION THERAPY
     Dates: start: 20070109, end: 20070116
  2. TOPAMAX [Concomitant]

REACTIONS (2)
  - CHEST DISCOMFORT [None]
  - HEART RATE INCREASED [None]
